FAERS Safety Report 20603571 (Version 1)
Quarter: 2022Q1

REPORT INFORMATION
  Report Type: Spontaneous
  Country: US (occurrence: None)
  Receive Date: 20220316
  Receipt Date: 20220316
  Transmission Date: 20220424
  Serious: Yes (unspecified)
  Sender: FDA-Public Use
  Company Number: None

PATIENT
  Age: 76 Year
  Sex: Male
  Weight: 72 kg

DRUGS (1)
  1. GAMUNEX-C [Suspect]
     Active Substance: HUMAN IMMUNOGLOBULIN G
     Indication: Polyarteritis nodosa
     Dates: start: 20220309, end: 20220309

REACTIONS (6)
  - Anaphylactic shock [None]
  - Angioedema [None]
  - Rash [None]
  - Tachypnoea [None]
  - Urticaria [None]
  - Tachycardia [None]

NARRATIVE: CASE EVENT DATE: 20220309
